FAERS Safety Report 9456976 (Version 7)
Quarter: 2014Q2

REPORT INFORMATION
  Report Type: Report from Study
  Country: CA (occurrence: CA)
  Receive Date: 20130814
  Receipt Date: 20140401
  Transmission Date: 20141212
  Serious: Yes (Other)
  Sender: FDA-Public Use
  Company Number: CA-ROCHE-1260414

PATIENT
  Age: 63 Year
  Sex: Male

DRUGS (13)
  1. AVASTIN [Suspect]
     Indication: GLIOBLASTOMA
     Route: 042
     Dates: start: 20130731
  2. AVASTIN [Suspect]
     Route: 042
     Dates: start: 20131204
  3. DECADRON [Concomitant]
  4. KEPPRA [Concomitant]
  5. METFORMIN [Concomitant]
  6. DIAMICRON [Concomitant]
  7. RAMIPRIL [Concomitant]
  8. ROSUVASTATIN [Concomitant]
  9. PANTOPRAZOLE [Concomitant]
  10. RANITIDINE [Concomitant]
  11. GLICLAZIDE [Concomitant]
  12. TAMSULOSIN [Concomitant]
  13. CITALOPRAM [Concomitant]

REACTIONS (17)
  - Rash [Not Recovered/Not Resolved]
  - Hyperglycaemia [Not Recovered/Not Resolved]
  - Agitation [Not Recovered/Not Resolved]
  - Confusional state [Not Recovered/Not Resolved]
  - Haemoglobin decreased [Not Recovered/Not Resolved]
  - Haematocrit decreased [Not Recovered/Not Resolved]
  - Red blood cell count decreased [Not Recovered/Not Resolved]
  - Red cell distribution width increased [Not Recovered/Not Resolved]
  - Platelet count decreased [Not Recovered/Not Resolved]
  - Neutrophil count increased [Not Recovered/Not Resolved]
  - Lymphocyte count decreased [Not Recovered/Not Resolved]
  - Monocyte count increased [Not Recovered/Not Resolved]
  - Blood pressure increased [Unknown]
  - Infection [Unknown]
  - Tooth infection [Unknown]
  - Respiratory disorder [Not Recovered/Not Resolved]
  - Infection [Unknown]
